FAERS Safety Report 9392218 (Version 3)
Quarter: 2014Q2

REPORT INFORMATION
  Report Type: Report from Study
  Country: AU (occurrence: AU)
  Receive Date: 20130710
  Receipt Date: 20140526
  Transmission Date: 20141212
  Serious: Yes (Life-Threatening)
  Sender: FDA-Public Use
  Company Number: AU-ROCHE-1246427

PATIENT
  Age: 85 Year
  Sex: Male

DRUGS (8)
  1. RANIBIZUMAB [Suspect]
     Indication: PRODUCT USED FOR UNKNOWN INDICATION
     Dosage: IN 0.05ML
     Route: 050
     Dates: start: 20111208
  2. RANIBIZUMAB [Suspect]
     Dosage: IN 0.05ML
     Route: 050
     Dates: start: 20130424
  3. RANIBIZUMAB [Suspect]
     Route: 050
     Dates: start: 20130504
  4. RANIBIZUMAB [Suspect]
     Route: 050
     Dates: start: 20130619
  5. RANIBIZUMAB [Suspect]
     Route: 050
     Dates: start: 20140305
  6. CARTIA (AUSTRALIA) [Concomitant]
     Indication: THROMBOSIS PROPHYLAXIS
     Route: 065
     Dates: start: 2000
  7. INDAPAMIDE [Concomitant]
     Indication: HYPERTENSION
  8. PARIET [Concomitant]
     Indication: GASTROOESOPHAGEAL REFLUX DISEASE

REACTIONS (1)
  - Cerebrovascular accident [Recovering/Resolving]
